FAERS Safety Report 8358244-2 (Version None)
Quarter: 2012Q2

REPORT INFORMATION
  Report Type: 
  Country: None (occurrence: None)
  Receive Date: 20120514
  Receipt Date: 20120507
  Transmission Date: 20120825
  Serious: Yes (Other)
  Sender: FDA-Public Use
  Company Number: JP-GLAXOSMITHKLINE-B0800897A

PATIENT
  Sex: Female
  Weight: 39 kg

DRUGS (8)
  1. XELODA [Suspect]
     Dosage: 3000MG PER DAY
     Route: 048
     Dates: start: 20110113, end: 20120114
  2. MERISLON [Concomitant]
     Indication: NAUSEA
     Route: 048
     Dates: start: 20110322
  3. FENTANYL-100 [Concomitant]
     Indication: CANCER PAIN
     Route: 062
  4. ALPROSTADIL [Concomitant]
     Indication: DECUBITUS ULCER
     Route: 062
     Dates: end: 20120209
  5. GENTAMICIN SULFATE [Concomitant]
     Indication: OSTEONECROSIS OF JAW
     Route: 062
     Dates: start: 20110506, end: 20120426
  6. FERROUS CITRATE [Concomitant]
     Indication: ANAEMIA
     Route: 048
     Dates: start: 20110421
  7. TYKERB [Suspect]
     Indication: BREAST CANCER
     Dosage: 1250MG PER DAY
     Route: 048
     Dates: start: 20110113, end: 20120119
  8. PYDOXAL [Concomitant]
     Indication: PROPHYLAXIS
     Route: 048
     Dates: start: 20110113, end: 20120114

REACTIONS (1)
  - CARDIAC FAILURE [None]
